FAERS Safety Report 14259582 (Version 3)
Quarter: 2018Q1

REPORT INFORMATION
  Report Type: Spontaneous
  Country: IL (occurrence: IL)
  Receive Date: 20171207
  Receipt Date: 20180306
  Transmission Date: 20180508
  Serious: Yes (Other)
  Sender: FDA-Public Use
  Company Number: IL-KAMADA LIMITED-2017IL016607

PATIENT

DRUGS (2)
  1. CONTRACEPTIVES [Concomitant]
     Active Substance: UNSPECIFIED INGREDIENT
  2. KAMRAB [Suspect]
     Active Substance: HUMAN RABIES VIRUS IMMUNE GLOBULIN
     Indication: IMMUNISATION
     Route: 065

REACTIONS (2)
  - Ischaemic cerebral infarction [Unknown]
  - Product use in unapproved indication [Unknown]
